FAERS Safety Report 17413784 (Version 1)
Quarter: 2020Q1

REPORT INFORMATION
  Report Type: Spontaneous
  Country: IE (occurrence: IE)
  Receive Date: 20200213
  Receipt Date: 20200213
  Transmission Date: 20200409
  Serious: Yes (Other)
  Sender: FDA-Public Use
  Company Number: IE-SA-2020SA034350

PATIENT
  Sex: Female

DRUGS (1)
  1. FEXOFENADINE [Suspect]
     Active Substance: FEXOFENADINE HYDROCHLORIDE
     Indication: CHRONIC SINUSITIS
     Dosage: ONCE DAILY - TAKEN AT NIGHT
     Route: 048
     Dates: start: 20200109, end: 20200118

REACTIONS (11)
  - Anxiety [Recovering/Resolving]
  - Pruritus [Recovering/Resolving]
  - Slow speech [Recovering/Resolving]
  - Memory impairment [Recovering/Resolving]
  - Speech disorder [Recovering/Resolving]
  - Somnolence [Recovering/Resolving]
  - Dry skin [Recovering/Resolving]
  - Neurological examination abnormal [Recovering/Resolving]
  - Dry mouth [Recovering/Resolving]
  - Impaired driving ability [Recovering/Resolving]
  - Decreased appetite [Recovering/Resolving]
